FAERS Safety Report 5296030-0 (Version None)
Quarter: 2007Q2

REPORT INFORMATION
  Report Type: 
  Country: None (occurrence: None)
  Receive Date: 20070406
  Receipt Date: 20070321
  Transmission Date: 20071010
  Serious: Yes (Hospitalization)
  Sender: FDA-Public Use
  Company Number: 239084

PATIENT
  Age: 39 Year
  Sex: Female

DRUGS (2)
  1. HERCEPTIN [Suspect]
     Indication: BREAST CANCER METASTATIC
     Dosage: 600 MG, UNK, INTRAVENOUS
     Route: 042
     Dates: start: 20070221
  2. VINORELBINE TARTRATE [Suspect]
     Indication: BREAST CANCER METASTATIC
     Dosage: 65 MG, UNK, INTRAVENOUS
     Route: 042
     Dates: start: 20070221

REACTIONS (2)
  - PHLEBITIS [None]
  - THROMBOCYTOPENIA [None]
